FAERS Safety Report 7539026-8 (Version None)
Quarter: 2011Q2

REPORT INFORMATION
  Report Type: 
  Country: None (occurrence: None)
  Receive Date: 20110610
  Receipt Date: 20110530
  Transmission Date: 20111010
  Serious: Yes (Other)
  Sender: FDA-Public Use
  Company Number: PHHY2011DE48465

PATIENT
  Sex: Male

DRUGS (2)
  1. EQUASYM [Concomitant]
     Dosage: UNK UKN, UNK
  2. RITALIN [Suspect]
     Dosage: UNK UKN, UNK
     Route: 048

REACTIONS (1)
  - INTRAOCULAR PRESSURE INCREASED [None]
